FAERS Safety Report 21459578 (Version 2)
Quarter: 2022Q4

REPORT INFORMATION
  Report Type: Spontaneous
  Country: US (occurrence: None)
  Receive Date: 20221014
  Receipt Date: 20221129
  Transmission Date: 20230113
  Serious: Yes (Death)
  Sender: FDA-Public Use
  Company Number: 2022A345879

PATIENT
  Sex: Male
  Weight: 54.4 kg

DRUGS (2)
  1. DURVALUMAB\TREMELIMUMAB [Suspect]
     Active Substance: DURVALUMAB\TREMELIMUMAB
     Indication: Bladder cancer
     Route: 042
     Dates: start: 20220413, end: 20220414
  2. ENFORTUMAB [Suspect]
     Active Substance: ENFORTUMAB
     Route: 065

REACTIONS (1)
  - Adverse drug reaction [Fatal]
